FAERS Safety Report 17555958 (Version 2)
Quarter: 2020Q3

REPORT INFORMATION
  Report Type: Spontaneous
  Country: US (occurrence: US)
  Receive Date: 20200318
  Receipt Date: 20200813
  Transmission Date: 20201102
  Serious: Yes (Other)
  Sender: FDA-Public Use
  Company Number: US-SA-2020SA069331

PATIENT

DRUGS (14)
  1. DUPIXENT [Suspect]
     Active Substance: DUPILUMAB
     Indication: DERMATITIS ATOPIC
     Dosage: 300 MG, QOW
     Route: 058
     Dates: start: 20190710
  2. REPATHA [Concomitant]
     Active Substance: EVOLOCUMAB
  3. GABAPENTIN. [Concomitant]
     Active Substance: GABAPENTIN
  4. EPINEPHRINE. [Concomitant]
     Active Substance: EPINEPHRINE
  5. ALPRAZOLAM. [Concomitant]
     Active Substance: ALPRAZOLAM
  6. PANTOPRAZOLE [Concomitant]
     Active Substance: PANTOPRAZOLE
  7. AMOXICILLIN. [Concomitant]
     Active Substance: AMOXICILLIN
  8. TRAMADOL. [Concomitant]
     Active Substance: TRAMADOL
  9. ONDANSETRON [Concomitant]
     Active Substance: ONDANSETRON
  10. BRILINTA [Concomitant]
     Active Substance: TICAGRELOR
  11. AMOXCLAV [AMOXICILLIN;CLAVULANIC ACID] [Concomitant]
     Active Substance: AMOXICILLIN\CLAVULANIC ACID
  12. ACETAMIN [Concomitant]
     Active Substance: ACETAMINOPHEN
  13. LEVOFLOXACIN. [Concomitant]
     Active Substance: LEVOFLOXACIN
  14. SUPREP BOWEL PREP [Concomitant]
     Active Substance: MAGNESIUM SULFATE\POTASSIUM SULFATE\SODIUM SULFATE

REACTIONS (1)
  - Pneumonia [Not Recovered/Not Resolved]

NARRATIVE: CASE EVENT DATE: 202002
